FAERS Safety Report 16807811 (Version 1)
Quarter: 2019Q3

REPORT INFORMATION
  Report Type: Spontaneous
  Country: DE (occurrence: DE)
  Receive Date: 20190915
  Receipt Date: 20190915
  Transmission Date: 20191005
  Serious: Yes (Other)
  Sender: FDA-Public Use
  Company Number: PHHY2019DE210079

PATIENT
  Sex: Male

DRUGS (2)
  1. TAFINLAR [Suspect]
     Active Substance: DABRAFENIB MESYLATE
     Indication: MALIGNANT MELANOMA
     Dosage: 75 MG, QID, 4XDAILY
     Route: 065
     Dates: start: 201902
  2. MEKINIST [Suspect]
     Active Substance: TRAMETINIB DIMETHYL SULFOXIDE
     Indication: MALIGNANT MELANOMA
     Dosage: 2 MG, QD, 1XDAILY
     Route: 065
     Dates: start: 201902

REACTIONS (3)
  - Heart rate decreased [Not Recovered/Not Resolved]
  - Confusional state [Unknown]
  - Glomerular filtration rate decreased [Unknown]
